FAERS Safety Report 6944081-X (Version None)
Quarter: 2010Q3

REPORT INFORMATION
  Report Type: 
  Country: None (occurrence: None)
  Receive Date: 20100827
  Receipt Date: 20100818
  Transmission Date: 20110219
  Serious: No
  Sender: FDA-Public Use
  Company Number: US-BIOGENIDEC-2010BI020848

PATIENT
  Age: 30 Year
  Sex: Female

DRUGS (2)
  1. TYSABRI [Suspect]
     Indication: MULTIPLE SCLEROSIS
     Route: 042
     Dates: start: 20090326, end: 20090326
  2. TYSABRI [Suspect]
     Route: 042
     Dates: start: 20100114, end: 20100401

REACTIONS (4)
  - BLINDNESS [None]
  - DRUG DEPENDENCE [None]
  - FATIGUE [None]
  - PAIN [None]
